FAERS Safety Report 6615098-X (Version None)
Quarter: 2010Q1

REPORT INFORMATION
  Report Type: 
  Country: None (occurrence: None)
  Receive Date: 20100226
  Receipt Date: 20100218
  Transmission Date: 20100710
  Serious: Yes (Hospitalization)
  Sender: FDA-Public Use
  Company Number: VISP-NO-1002S-0082

PATIENT
  Age: 71 Year
  Sex: Male

DRUGS (10)
  1. VISIPAQUE [Suspect]
     Indication: DRUG USE FOR UNKNOWN INDICATION
     Dosage: SINGLE DOSE, I.V.
     Route: 042
     Dates: start: 20100119, end: 20100119
  2. RAMIPRIL [Suspect]
     Indication: DRUG USE FOR UNKNOWN INDICATION
     Dosage: P.O.
     Route: 048
     Dates: end: 20100125
  3. LASIX-L 60 MG [Suspect]
     Indication: DRUG USE FOR UNKNOWN INDICATION
     Dosage: P.O.
     Route: 048
     Dates: end: 20100125
  4. GLUCOPHAGE [Suspect]
     Indication: DRUG USE FOR UNKNOWN INDICATION
     Dosage: P.O.
     Route: 048
  5. ATORVASTATIN CALCIUM [Suspect]
     Indication: DRUG USE FOR UNKNOWN INDICATION
     Dosage: P.O.
     Route: 048
     Dates: end: 20100125
  6. ISOPTIN [Concomitant]
  7. PLAVIX [Concomitant]
  8. CARDENSIEL [Concomitant]
  9. PREVISCAN [Concomitant]
  10. EXELON [Concomitant]

REACTIONS (6)
  - ANAEMIA MACROCYTIC [None]
  - CONFUSIONAL STATE [None]
  - HYPERKALAEMIA [None]
  - LACTIC ACIDOSIS [None]
  - RENAL FAILURE ACUTE [None]
  - UNEVALUABLE EVENT [None]
